FAERS Safety Report 9402040 (Version 2)
Quarter: 2013Q3

REPORT INFORMATION
  Report Type: Spontaneous
  Country: GB (occurrence: GB)
  Receive Date: 20130716
  Receipt Date: 20130909
  Transmission Date: 20140515
  Serious: Yes (Other)
  Sender: FDA-Public Use
  Company Number: PHFR2013GB003414

PATIENT
  Age: 31 Year
  Sex: Male
  Weight: 100.8 kg

DRUGS (7)
  1. CLOZARIL [Suspect]
     Indication: ANTIPSYCHOTIC DRUG LEVEL DECREASED
     Dosage: UNK
     Route: 048
     Dates: start: 20070503
  2. CLOZARIL [Suspect]
     Dosage: UNK
     Route: 048
     Dates: start: 20130517
  3. CLOZARIL [Suspect]
     Dosage: 250 MG DAILY
     Route: 048
     Dates: start: 20130613
  4. EPILIM [Concomitant]
     Indication: MOOD ALTERED
     Dosage: 800 MG, DAILY
     Route: 048
  5. FLUOXETINE [Concomitant]
     Indication: DEPRESSION
     Dosage: 40 MG, DAILY
     Route: 048
  6. HYOSCINE [Concomitant]
     Indication: EXTRAPYRAMIDAL DISORDER
     Dosage: 300 UG, DAILY
     Route: 048
  7. LANSOPRAZOLE [Concomitant]
     Indication: ABDOMINAL PAIN UPPER
     Dosage: 15 MG, DAILY
     Route: 048

REACTIONS (2)
  - Oropharyngeal pain [Recovered/Resolved]
  - Antipsychotic drug level increased [Recovering/Resolving]
